FAERS Safety Report 5670268-2 (Version None)
Quarter: 2008Q1

REPORT INFORMATION
  Report Type: 
  Country: None (occurrence: None)
  Receive Date: 20080318
  Receipt Date: 20080307
  Transmission Date: 20080703
  Serious: Yes (Other)
  Sender: FDA-Public Use
  Company Number: JP-BRISTOL-MYERS SQUIBB COMPANY-14115794

PATIENT
  Age: 88 Year

DRUGS (5)
  1. ENDOXAN [Suspect]
     Indication: LYMPHOMA
     Route: 065
  2. DOXORUBICIN HCL [Suspect]
     Indication: LYMPHOMA
     Route: 065
  3. VINCRISTINE SULFATE [Suspect]
     Indication: LYMPHOMA
     Route: 065
  4. PREDNISOLONE [Suspect]
     Indication: LYMPHOMA
     Route: 065
  5. RITUXIMAB [Suspect]
     Indication: LYMPHOMA
     Route: 065

REACTIONS (2)
  - NEPHROGENIC ANAEMIA [None]
  - RENAL IMPAIRMENT [None]
